FAERS Safety Report 4775652-7 (Version None)
Quarter: 2005Q3

REPORT INFORMATION
  Report Type: 
  Country: None (occurrence: None)
  Receive Date: 20050920
  Receipt Date: 20050920
  Transmission Date: 20060218
  Serious: Yes (Other)
  Sender: FDA-Public Use
  Company Number: None

PATIENT
  Age: 37 Year
  Sex: Male

DRUGS (1)
  1. NEURONTIN [Suspect]
     Dosage: 600 MG #4 QD PO
     Route: 048

REACTIONS (4)
  - PRURITUS [None]
  - SKIN BURNING SENSATION [None]
  - THERAPEUTIC RESPONSE UNEXPECTED WITH DRUG SUBSTITUTION [None]
  - URTICARIA [None]
